FAERS Safety Report 9851145 (Version 4)
Quarter: 2014Q2

REPORT INFORMATION
  Report Type: Spontaneous
  Country: FR (occurrence: FR)
  Receive Date: 20140128
  Receipt Date: 20140625
  Transmission Date: 20141212
  Serious: Yes (Other)
  Sender: FDA-Public Use
  Company Number: FR-GILEAD-2014-0092994

PATIENT
  Age: 38 Year
  Sex: Female

DRUGS (3)
  1. TRUVADA [Suspect]
     Indication: HIV INFECTION
     Dosage: 1 DF, QD
     Route: 065
  2. ISENTRESS [Concomitant]
     Indication: HIV INFECTION
  3. INTELENCE [Concomitant]
     Indication: HIV INFECTION

REACTIONS (3)
  - Cardiomyopathy [Not Recovered/Not Resolved]
  - Infective thrombosis [Not Recovered/Not Resolved]
  - Intentional product misuse [Not Recovered/Not Resolved]
